FAERS Safety Report 9409776 (Version 1)
Quarter: 2013Q3

REPORT INFORMATION
  Report Type: Report from Study
  Country: US (occurrence: US)
  Receive Date: 20130719
  Receipt Date: 20130719
  Transmission Date: 20140515
  Serious: Yes (Death)
  Sender: FDA-Public Use
  Company Number: US-ASTELLAS-2013US007540

PATIENT
  Sex: Male

DRUGS (1)
  1. ERLOTINIB TABLET [Suspect]
     Indication: NON-SMALL CELL LUNG CANCER
     Dosage: 150 MG, UID/QD
     Route: 048
     Dates: start: 20130304, end: 20130415

REACTIONS (6)
  - Asthenia [Fatal]
  - Constipation [Fatal]
  - Erythema [Fatal]
  - Asthenia [Fatal]
  - Dry mouth [Unknown]
  - Decreased appetite [Unknown]
